FAERS Safety Report 18818174 (Version 1)
Quarter: 2021Q1

REPORT INFORMATION
  Report Type: Report from Study
  Country: CO (occurrence: CO)
  Receive Date: 20210201
  Receipt Date: 20210201
  Transmission Date: 20210419
  Serious: Yes (Other)
  Sender: FDA-Public Use
  Company Number: NVSC2021CO022518

PATIENT
  Age: 66 Year
  Sex: Female
  Weight: 84 kg

DRUGS (2)
  1. ASPIRINETAS [Concomitant]
     Active Substance: ASPIRIN
     Indication: HYPERTENSION
     Dosage: 24 HOURS
     Route: 048
  2. LOSARTAN. [Suspect]
     Active Substance: LOSARTAN
     Indication: HYPERTENSION
     Dosage: 50 MG EVERY 12 HOURS
     Route: 048

REACTIONS (3)
  - Off label use [Unknown]
  - Ovarian cancer [Unknown]
  - Idiopathic urticaria [Not Recovered/Not Resolved]

NARRATIVE: CASE EVENT DATE: 202001
